FAERS Safety Report 9412323 (Version 2)
Quarter: 2013Q3

REPORT INFORMATION
  Report Type: Spontaneous
  Country: US (occurrence: US)
  Receive Date: 20130722
  Receipt Date: 20130917
  Transmission Date: 20140515
  Serious: Yes (Other)
  Sender: FDA-Public Use
  Company Number: US-ELI_LILLY_AND_COMPANY-US201307004892

PATIENT
  Sex: Female

DRUGS (3)
  1. HUMALOG LISPRO [Suspect]
     Dosage: 5 U, TID
  2. HUMALOG LISPRO [Suspect]
     Dosage: 15 U, TID
  3. LANTUS [Suspect]
     Dosage: UNK, EACH EVENING
     Route: 058

REACTIONS (7)
  - Splenomegaly [Unknown]
  - Hepatomegaly [Unknown]
  - Pancreatic enlargement [Unknown]
  - Cerebrovascular accident [Unknown]
  - Memory impairment [Unknown]
  - Blood glucose increased [Unknown]
  - General physical health deterioration [Not Recovered/Not Resolved]
